FAERS Safety Report 6179209-5 (Version None)
Quarter: 2009Q2

REPORT INFORMATION
  Report Type: 
  Country: None (occurrence: None)
  Receive Date: 20090430
  Receipt Date: 20090420
  Transmission Date: 20091009
  Serious: Yes (Hospitalization)
  Sender: FDA-Public Use
  Company Number: CIO09009710

PATIENT

DRUGS (1)
  1. 44 ADULT, FORM/ VERSION/FLAVOR UNKNOWN (ETHANOL UNKNOWN UNK, CHLORPHEN [Suspect]
     Dosage: ORAL
     Route: 048

REACTIONS (6)
  - INTENTIONAL OVERDOSE [None]
  - NAUSEA [None]
  - OPIATES POSITIVE [None]
  - PYREXIA [None]
  - STUPOR [None]
  - VOMITING [None]
